FAERS Safety Report 7608240-5 (Version None)
Quarter: 2011Q3

REPORT INFORMATION
  Report Type: 
  Country: None (occurrence: None)
  Receive Date: 20110714
  Receipt Date: 20110711
  Transmission Date: 20111222
  Serious: Yes (Hospitalization)
  Sender: FDA-Public Use
  Company Number: JP-B.I. PHARMACEUTICALS,INC./RIDGEFIELD-2011-BP-17456NB

PATIENT
  Age: 84 Year
  Sex: Male

DRUGS (3)
  1. SEREVENT [Concomitant]
     Route: 065
  2. SPIRIVA [Suspect]
     Route: 055
     Dates: end: 20110706
  3. RABEPRAZOLE SODIUM [Concomitant]
     Indication: GASTRIC CANCER
     Route: 065

REACTIONS (4)
  - ABNORMAL SENSATION IN EYE [None]
  - PNEUMOTHORAX [None]
  - DYSURIA [None]
  - OCULAR HYPERAEMIA [None]
